FAERS Safety Report 23485149 (Version 1)
Quarter: 2024Q1

REPORT INFORMATION
  Report Type: Spontaneous
  Country: US (occurrence: US)
  Receive Date: 20240206
  Receipt Date: 20240206
  Transmission Date: 20240409
  Serious: No
  Sender: FDA-Public Use
  Company Number: US-SA-SAC20240127000398

PATIENT
  Age: 6 Year
  Sex: Female

DRUGS (1)
  1. DUPIXENT [Suspect]
     Active Substance: DUPILUMAB
     Indication: Dermatitis atopic
     Dosage: 300 MG QOW
     Route: 058

REACTIONS (8)
  - Tonsillectomy [Unknown]
  - Dermatitis atopic [Unknown]
  - Scab [Unknown]
  - Skin haemorrhage [Unknown]
  - Dry skin [Not Recovered/Not Resolved]
  - Injection site pain [Unknown]
  - Pain [Unknown]
  - Injected limb mobility decreased [Unknown]

NARRATIVE: CASE EVENT DATE: 20231229
